FAERS Safety Report 13476792 (Version 1)
Quarter: 2017Q2

REPORT INFORMATION
  Report Type: Spontaneous
  Country: CA (occurrence: CA)
  Receive Date: 20170425
  Receipt Date: 20170425
  Transmission Date: 20170830
  Serious: Yes (Other)
  Sender: FDA-Public Use
  Company Number: CA-GLAXOSMITHKLINE-CA2017GSK058037

PATIENT
  Sex: Female

DRUGS (1)
  1. NUCALA [Suspect]
     Active Substance: MEPOLIZUMAB
     Indication: ASTHMA
     Dosage: 100 MG, Z
     Route: 042

REACTIONS (8)
  - Breast cancer [Unknown]
  - BRCA1 gene mutation [Unknown]
  - Influenza like illness [Unknown]
  - Cough [Unknown]
  - Oropharyngeal pain [Unknown]
  - Increased bronchial secretion [Unknown]
  - Sputum discoloured [Unknown]
  - Pyrexia [Unknown]
